FAERS Safety Report 8312305-2 (Version None)
Quarter: 2012Q2

REPORT INFORMATION
  Report Type: 
  Country: None (occurrence: None)
  Receive Date: 20120425
  Receipt Date: 20120413
  Transmission Date: 20120825
  Serious: Yes (Other)
  Sender: FDA-Public Use
  Company Number: US-ELI_LILLY_AND_COMPANY-US201204008765

PATIENT
  Sex: Male

DRUGS (5)
  1. MELOXICAM [Concomitant]
  2. METOPROLOL TARTRATE [Concomitant]
  3. CIALIS [Suspect]
     Dosage: 5 MG, QD
     Dates: start: 20110921
  4. VYTORIN [Concomitant]
  5. NIASPAN [Concomitant]

REACTIONS (1)
  - PROSTATE CANCER [None]
